FAERS Safety Report 6740669-X (Version None)
Quarter: 2010Q2

REPORT INFORMATION
  Report Type: 
  Country: None (occurrence: None)
  Receive Date: 20100525
  Receipt Date: 20100513
  Transmission Date: 20101027
  Serious: Yes (Hospitalization, Other)
  Sender: FDA-Public Use
  Company Number: US-PFIZER INC-2010060743

PATIENT
  Sex: Female

DRUGS (6)
  1. LYRICA [Suspect]
     Indication: FIBROMYALGIA
     Dosage: 30 MG, 1X/DAY
     Route: 048
     Dates: start: 20090101
  2. LYRICA [Suspect]
     Dosage: 75 MG, 2X/DAY
  3. XANAX [Concomitant]
     Indication: ATTENTION DEFICIT/HYPERACTIVITY DISORDER
     Dosage: UNK
     Route: 048
     Dates: end: 20100513
  4. CYMBALTA [Concomitant]
     Indication: FIBROMYALGIA
     Dosage: UNK
     Route: 048
  5. CARVEDILOL [Concomitant]
     Indication: HYPERTENSION
     Dosage: UNK
  6. BENAZEPRIL [Concomitant]
     Indication: HYPERTENSION
     Dosage: UNK

REACTIONS (5)
  - ARTHRITIS [None]
  - BLISTER [None]
  - DRUG TOXICITY [None]
  - INTERVERTEBRAL DISC PROTRUSION [None]
  - SCOLIOSIS [None]
